FAERS Safety Report 8282505-9 (Version None)
Quarter: 2012Q2

REPORT INFORMATION
  Report Type: 
  Country: None (occurrence: None)
  Receive Date: 20120413
  Receipt Date: 20120405
  Transmission Date: 20120825
  Serious: Yes (Other)
  Sender: FDA-Public Use
  Company Number: GB-PFIZER INC-2012049451

PATIENT
  Age: 75 Year
  Sex: Male

DRUGS (12)
  1. METFORMIN HCL [Suspect]
     Dosage: UNK
  2. ATORVASTATIN [Suspect]
     Dosage: UNK
  3. RAMIPRIL [Suspect]
     Dosage: 5 MG, DAILY
  4. CYSTEINE [Suspect]
     Dosage: UNK
  5. WARFARIN SODIUM [Suspect]
     Indication: ATRIAL FIBRILLATION
     Dosage: UNK
  6. ALBUTEROL [Suspect]
     Dosage: UNK
  7. SPIRIVA [Concomitant]
  8. FORMOTEROL FUMARATE [Suspect]
     Dosage: UNK
     Route: 055
  9. FUROSEMIDE [Suspect]
     Dosage: UNK
  10. SYMBICORT [Concomitant]
  11. PREDNISOLONE [Suspect]
     Indication: CHRONIC OBSTRUCTIVE PULMONARY DISEASE
     Dosage: UNK
  12. VERAPAMIL [Suspect]
     Indication: ATRIAL FIBRILLATION
     Dosage: UNK

REACTIONS (1)
  - HALLUCINATION [None]
